FAERS Safety Report 5056086-7 (Version None)
Quarter: 2006Q3

REPORT INFORMATION
  Report Type: 
  Country: None (occurrence: None)
  Receive Date: 20060718
  Receipt Date: 20060718
  Transmission Date: 20061208
  Serious: Yes (Other)
  Sender: FDA-Public Use
  Company Number: None

PATIENT
  Age: 39 Year
  Sex: Female

DRUGS (2)
  1. XANAX [Suspect]
     Indication: GENERALISED ANXIETY DISORDER
     Dosage: 1 MG AT HS
  2. XANAX XR [Suspect]
     Indication: PANIC DISORDER
     Dosage: 3 MG QAM

REACTIONS (2)
  - PRURITUS [None]
  - RASH [None]
